FAERS Safety Report 23970786 (Version 2)
Quarter: 2024Q3

REPORT INFORMATION
  Report Type: Spontaneous
  Country: CZ (occurrence: CZ)
  Receive Date: 20240613
  Receipt Date: 20240704
  Transmission Date: 20241016
  Serious: Yes (Other)
  Sender: BRISTOL MYERS SQUIBB
  Company Number: CZ-SUN PHARMACEUTICAL INDUSTRIES LTD-2024RR-450034

PATIENT
  Age: 75 Year
  Sex: Female

DRUGS (8)
  1. PACLITAXEL [Suspect]
     Active Substance: PACLITAXEL
     Indication: Pancreatic carcinoma metastatic
     Dosage: ON DAYS 1 AND 15
  2. PACLITAXEL [Suspect]
     Active Substance: PACLITAXEL
     Dosage: INTERVALS OF 14 DAYS (AFTER 3 MONTHS)
     Dates: start: 201904, end: 202204
  3. GEMCITABINE [Suspect]
     Active Substance: GEMCITABINE
     Indication: Pancreatic carcinoma metastatic
     Dosage: DAYS 1, 8 AND 15
     Route: 042
  4. GEMCITABINE [Suspect]
     Active Substance: GEMCITABINE
     Dosage: INTERVALS OF 14 DAYS (AFTER 3 MONTHS)
     Route: 042
     Dates: start: 201904, end: 202204
  5. CAPECITABINE [Suspect]
     Active Substance: CAPECITABINE
     Indication: Pancreatic carcinoma metastatic
  6. FLUOROURACIL [Suspect]
     Active Substance: FLUOROURACIL
     Indication: Chemotherapy
     Dosage: 2ND LINE OF TREATMENT
     Dates: start: 202204, end: 202306
  7. ONIVYDE [Suspect]
     Active Substance: IRINOTECAN HYDROCHLORIDE
     Indication: Pancreatic carcinoma metastatic
     Dosage: 2ND LINE OF TREATMENT
     Dates: start: 202204, end: 202306
  8. LEUCOVORIN CALCIUM [Suspect]
     Active Substance: LEUCOVORIN CALCIUM
     Indication: Pancreatic carcinoma metastatic
     Dosage: 2ND LINE OF TREATMENT
     Dates: start: 202204, end: 202306

REACTIONS (5)
  - Malignant neoplasm progression [Unknown]
  - Fatigue [Unknown]
  - Condition aggravated [Unknown]
  - Frequent bowel movements [Unknown]
  - Therapeutic product effect incomplete [Unknown]
